FAERS Safety Report 11855188 (Version 1)
Quarter: 2015Q4

REPORT INFORMATION
  Report Type: Spontaneous
  Country: US (occurrence: US)
  Receive Date: 20151221
  Receipt Date: 20151221
  Transmission Date: 20160305
  Serious: No
  Sender: FDA-Public Use
  Company Number: US-TEVA-568320USA

PATIENT
  Sex: Male

DRUGS (1)
  1. METRONIDAZOLE. [Suspect]
     Active Substance: METRONIDAZOLE
     Route: 048

REACTIONS (5)
  - Product taste abnormal [Unknown]
  - Product quality issue [Unknown]
  - Retching [Unknown]
  - Vomiting [Unknown]
  - Foreign body [Unknown]
